FAERS Safety Report 5404816-4 (Version None)
Quarter: 2007Q3

REPORT INFORMATION
  Report Type: 
  Country: None (occurrence: None)
  Receive Date: 20070803
  Receipt Date: 20070727
  Transmission Date: 20080115
  Serious: Yes (Death)
  Sender: FDA-Public Use
  Company Number: PHHO2007JP12572

PATIENT
  Age: 76 Year
  Sex: Male
  Weight: 46 kg

DRUGS (23)
  1. MYTELASE [Concomitant]
     Indication: MYASTHENIA GRAVIS
  2. PROGRAF [Concomitant]
     Indication: MYASTHENIA GRAVIS
  3. ENALAPRIL MALEATE [Concomitant]
     Indication: HYPERTENSION
  4. ARTIST [Concomitant]
     Indication: HYPERTENSION
  5. FLORID [Concomitant]
     Indication: ORAL CANDIDIASIS
  6. FUROSEMIDE [Concomitant]
     Indication: URINE OUTPUT DECREASED
  7. FAMOTIDINE [Concomitant]
     Indication: GASTRIC ULCER
  8. RISPERDAL [Concomitant]
     Indication: DELIRIUM
  9. NEORAL [Suspect]
     Indication: MYASTHENIA GRAVIS
     Dosage: 300 MG, QD
     Route: 048
     Dates: start: 20061212, end: 20061218
  10. NEORAL [Suspect]
     Dosage: 200 MG, QD
     Route: 048
     Dates: start: 20061219, end: 20070130
  11. PREDONINE [Suspect]
     Indication: MYASTHENIA GRAVIS
     Dosage: 40 MG/DAILY
     Route: 048
     Dates: start: 20061010, end: 20061104
  12. PREDONINE [Suspect]
     Dosage: 35 MG/DAILY
     Route: 048
     Dates: start: 20061105, end: 20061208
  13. PREDONINE [Suspect]
     Dosage: 30 MG/DAILY
     Route: 048
     Dates: start: 20061209, end: 20061211
  14. PREDONINE [Suspect]
     Dosage: 25 MG/DAILY
     Route: 048
     Dates: start: 20061212, end: 20061225
  15. PREDONINE [Suspect]
     Dosage: 35 MG/DAILY
     Route: 048
     Dates: start: 20061226, end: 20061227
  16. PREDONINE [Suspect]
     Dosage: 40 MG/DAILY
     Route: 048
     Dates: start: 20061231, end: 20070131
  17. PREDONINE [Suspect]
     Dosage: 35 MG/DAILY
     Route: 048
     Dates: start: 20070201, end: 20070204
  18. PREDONINE [Suspect]
     Dosage: 30 MG/DAILY
     Route: 048
     Dates: start: 20070205
  19. POLYCARBOPHIL CALCIUM [Concomitant]
  20. SODIUM CHLORIDE [Concomitant]
     Indication: HYPONATRAEMIA
  21. OMEPRAZOLE [Concomitant]
     Indication: GASTRIC ULCER
  22. VANCOMYCIN [Concomitant]
     Indication: GASTROENTERITIS STAPHYLOCOCCAL
  23. ALDACTONE [Concomitant]
     Indication: URINE OUTPUT DECREASED
     Route: 048

REACTIONS (1)
  - BRONCHOPULMONARY ASPERGILLOSIS [None]
